FAERS Safety Report 8903368 (Version 1)
Quarter: 2012Q4

REPORT INFORMATION
  Report Type: 
  Country: US (occurrence: US)
  Receive Date: 20121113
  Receipt Date: 20121113
  Transmission Date: 20130627
  Serious: Yes (Other)
  Sender: FDA-Public Use
  Company Number: US-PURDUE-USA-2012-0095377

PATIENT
  Age: 52 None
  Sex: Female

DRUGS (1)
  1. OXYCONTIN (NDA 22-272) [Suspect]
     Indication: LIMB CRUSHING INJURY
     Dosage: 40 mg, (90 tablets per month)
     Route: 048

REACTIONS (8)
  - Surgery [Unknown]
  - Pain [Unknown]
  - Drug withdrawal syndrome [Unknown]
  - Heart rate increased [Unknown]
  - Gait disturbance [Unknown]
  - Hyperhidrosis [Unknown]
  - Product physical issue [Unknown]
  - Drug effect decreased [Unknown]
